FAERS Safety Report 25112433 (Version 1)
Quarter: 2025Q1

REPORT INFORMATION
  Report Type: Report from Study
  Country: US (occurrence: US)
  Receive Date: 20250324
  Receipt Date: 20250324
  Transmission Date: 20250409
  Serious: Yes (Death)
  Sender: BAYER HEALTHCARE PHARMACEUTICALS INC.
  Company Number: US-BAYER-2025A039361

PATIENT
  Age: 84 Year
  Sex: Female
  Weight: 48.98 kg

DRUGS (37)
  1. ADEMPAS [Suspect]
     Active Substance: RIOCIGUAT
     Indication: Pulmonary arterial hypertension
     Dates: start: 20240129
  2. ADEMPAS [Suspect]
     Active Substance: RIOCIGUAT
     Indication: Pulmonary arterial hypertension
     Dosage: 2.5 MG, TID
     Route: 048
  3. CYANOCOBALAMIN\DEXPANTHENOL\NIACINAMIDE\PYRIDOXINE HYDROCHLORIDE\RIBOF [Concomitant]
     Active Substance: CYANOCOBALAMIN\DEXPANTHENOL\NIACINAMIDE\PYRIDOXINE HYDROCHLORIDE\RIBOFLAVIN 5^-PHOSPHATE SODIUM\THIA
  4. VITAMIN C [Concomitant]
     Active Substance: ASCORBIC ACID
  5. GARLIC [Concomitant]
     Active Substance: GARLIC
  6. Nasogel [Concomitant]
  7. ZYRTEC-D [Concomitant]
     Active Substance: CETIRIZINE HYDROCHLORIDE\PSEUDOEPHEDRINE HYDROCHLORIDE
  8. ELIQUIS [Concomitant]
     Active Substance: APIXABAN
  9. POTASSIUM CHLORIDE [Concomitant]
     Active Substance: POTASSIUM CHLORIDE
  10. ARGININE [Concomitant]
     Active Substance: ARGININE
  11. DIETARY SUPPLEMENT [Concomitant]
     Active Substance: DIETARY SUPPLEMENT
  12. COENZYME Q10 [Concomitant]
     Active Substance: DIETARY SUPPLEMENT\UBIDECARENONE
  13. CALCIUM\CHOLECALCIFEROL [Concomitant]
     Active Substance: CALCIUM\CHOLECALCIFEROL
  14. MINERALS\VITAMINS [Concomitant]
     Active Substance: MINERALS\VITAMINS
  15. BEPREVE [Concomitant]
     Active Substance: BEPOTASTINE BESILATE
  16. TRELEGY ELLIPTA [Concomitant]
     Active Substance: FLUTICASONE FUROATE\UMECLIDINIUM BROMIDE\VILANTEROL TRIFENATATE
  17. VITAMIN D3 [Concomitant]
     Active Substance: CHOLECALCIFEROL
  18. TYLENOL PM EXTRA STRENGTH [Concomitant]
     Active Substance: ACETAMINOPHEN\DIPHENHYDRAMINE HYDROCHLORIDE
  19. VITAMINS [Concomitant]
     Active Substance: VITAMINS
  20. MUCINEX [Concomitant]
     Active Substance: GUAIFENESIN
  21. FLUTICASONE PROPIONATE [Concomitant]
     Active Substance: FLUTICASONE PROPIONATE
  22. ZINC [Concomitant]
     Active Substance: ZINC
  23. VITAMIN B12 [Concomitant]
     Active Substance: CYANOCOBALAMIN
  24. DIETARY SUPPLEMENT\PROBIOTICS [Concomitant]
     Active Substance: DIETARY SUPPLEMENT\PROBIOTICS NOS
  25. TUMS [Concomitant]
     Active Substance: CALCIUM CARBONATE
  26. SYNTHROID [Concomitant]
     Active Substance: LEVOTHYROXINE SODIUM
  27. BUMETANIDE [Concomitant]
     Active Substance: BUMETANIDE
  28. FLAXSEED [Concomitant]
     Active Substance: FLAX SEED
  29. LISINOPRIL [Concomitant]
     Active Substance: LISINOPRIL
  30. OXYGEN [Concomitant]
     Active Substance: OXYGEN
  31. IRON [Concomitant]
     Active Substance: IRON
  32. VITAMIN E [Concomitant]
     Active Substance: .ALPHA.-TOCOPHEROL
  33. HERBALS\TURMERIC [Concomitant]
     Active Substance: HERBALS\TURMERIC
  34. OPCON-A [Concomitant]
     Active Substance: NAPHAZOLINE HYDROCHLORIDE\PHENIRAMINE MALEATE
  35. STOOL SOFTENER (DOCUSATE) [Concomitant]
     Active Substance: DOCUSATE
  36. OMEPRAZOLE AND SODIUM BICARBONATE [Concomitant]
     Active Substance: OMEPRAZOLE\SODIUM BICARBONATE
  37. SYSTANE ULTRA [Concomitant]
     Active Substance: POLYETHYLENE GLYCOL 400\PROPYLENE GLYCOL

REACTIONS (1)
  - Death [Fatal]

NARRATIVE: CASE EVENT DATE: 20250307
